FAERS Safety Report 5856571-1 (Version None)
Quarter: 2008Q3

REPORT INFORMATION
  Report Type: 
  Country: None (occurrence: None)
  Receive Date: 20080822
  Receipt Date: 20080822
  Transmission Date: 20090109
  Serious: Yes (Death)
  Sender: FDA-Public Use
  Company Number: None

PATIENT
  Sex: Male
  Weight: 73.0291 kg

DRUGS (1)
  1. ERBITUX [Suspect]
     Indication: METASTATIC SQUAMOUS CELL CARCINOMA
     Dosage: 756 MG LOADING DOSE IV
     Route: 042
     Dates: start: 20080813

REACTIONS (7)
  - BLOOD PRESSURE DECREASED [None]
  - CHILLS [None]
  - ERYTHEMA [None]
  - HEART RATE DECREASED [None]
  - OXYGEN SATURATION DECREASED [None]
  - PRURITUS [None]
  - RESPIRATORY ARREST [None]
